FAERS Safety Report 8812489 (Version 4)
Quarter: 2012Q4

REPORT INFORMATION
  Report Type: 
  Country: NZ (occurrence: NZ)
  Receive Date: 20120927
  Receipt Date: 20121105
  Transmission Date: 20130627
  Serious: Yes (Hospitalization)
  Sender: FDA-Public Use
  Company Number: NZ-009507513-1209NZL010274

PATIENT
  Age: 83 Year
  Sex: Male
  Weight: 96.5 kg

DRUGS (10)
  1. SITAGLIPTIN PHOSPHATE [Suspect]
     Indication: TYPE 2 DIABETES MELLITUS
     Dosage: UNK
     Route: 048
     Dates: start: 20110330
  2. ACETAMINOPHEN [Concomitant]
     Indication: OSTEOARTHRITIS
     Dosage: 1 g, prn
     Dates: start: 20120307
  3. LAXSOL [Concomitant]
     Indication: CONSTIPATION
     Dosage: 2 DF, qd
     Dates: start: 20120307
  4. DOXAZOSIN MESYLATE [Concomitant]
     Indication: PROPHYLAXIS
     Dosage: 2 mg, qd
     Dates: start: 20120308, end: 20120623
  5. INHIBACE (CAPTOPRIL) [Concomitant]
     Indication: PROPHYLAXIS
     Dosage: 2.5 mg, qd
     Dates: start: 20090716
  6. ASPIRIN [Concomitant]
     Indication: MYOCARDIAL ISCHAEMIA
     Dosage: 100 mg, qd
     Dates: start: 20080228
  7. SIMVASTATIN [Concomitant]
     Indication: DYSLIPIDAEMIA
     Dosage: 40 mg, qd
     Dates: start: 201111
  8. NOVORAPID [Concomitant]
     Indication: TYPE 2 DIABETES MELLITUS
     Dosage: 21 DF, qd
     Dates: start: 201111
  9. LANTUS [Concomitant]
     Indication: TYPE 2 DIABETES MELLITUS
     Dosage: 32 DF, qd
     Dates: start: 201010
  10. NITROGLYCERIN [Concomitant]
     Indication: ANGINA PECTORIS
     Dosage: 0.4 mg, qd
     Dates: start: 2008

REACTIONS (1)
  - Gastrooesophageal reflux disease [Recovered/Resolved]
